FAERS Safety Report 5093619-9 (Version None)
Quarter: 2006Q3

REPORT INFORMATION
  Report Type: 
  Country: None (occurrence: None)
  Receive Date: 20060829
  Receipt Date: 20060816
  Transmission Date: 20061208
  Serious: Yes (Death)
  Sender: FDA-Public Use
  Company Number: 2006AD000059

PATIENT
  Age: 84 Year
  Sex: Male

DRUGS (6)
  1. CEPHALEXIN [Suspect]
     Indication: STAPHYLOCOCCAL BACTERAEMIA
  2. ASPIRIN [Concomitant]
  3. ATENOLOL [Concomitant]
  4. GLIPIZIDE [Concomitant]
  5. LEVOFLOXACIN [Concomitant]
  6. CEFOTAXIME [Concomitant]

REACTIONS (14)
  - ACIDOSIS [None]
  - ANURIA [None]
  - CARDIAC VALVE VEGETATION [None]
  - ELECTROLYTE IMBALANCE [None]
  - HAEMODIALYSIS [None]
  - HENOCH-SCHONLEIN PURPURA [None]
  - LOSS OF CONSCIOUSNESS [None]
  - MENTAL STATUS CHANGES [None]
  - PRODUCTIVE COUGH [None]
  - RENAL FAILURE [None]
  - RENAL TUBULAR NECROSIS [None]
  - RESPIRATORY DISTRESS [None]
  - SOMNOLENCE [None]
  - STAPHYLOCOCCAL SEPSIS [None]
